FAERS Safety Report 17605305 (Version 1)
Quarter: 2020Q1

REPORT INFORMATION
  Report Type: Spontaneous
  Country: IT (occurrence: IT)
  Receive Date: 20200331
  Receipt Date: 20200331
  Transmission Date: 20200409
  Serious: Yes (Hospitalization)
  Sender: FDA-Public Use
  Company Number: IT-MYLANLABS-2020M1033435

PATIENT
  Age: 52 Year
  Sex: Female
  Weight: 89 kg

DRUGS (4)
  1. OXCARBAZEPINE. [Suspect]
     Active Substance: OXCARBAZEPINE
     Indication: BIPOLAR I DISORDER
     Dosage: 1800 MILLIGRAM, QD
     Route: 065
  2. PROMAZINE [Suspect]
     Active Substance: PROMAZINE
     Indication: BIPOLAR I DISORDER
     Dosage: 60 MILLIGRAM, QD
     Route: 065
  3. VENLAFAXINE [Suspect]
     Active Substance: VENLAFAXINE HYDROCHLORIDE
     Indication: BIPOLAR I DISORDER
     Dosage: 150 MILLIGRAM, QD
     Route: 065
  4. DELORAZEPAM [Suspect]
     Active Substance: DELORAZEPAM
     Indication: BIPOLAR I DISORDER
     Dosage: 4 MILLIGRAM, QD
     Route: 065

REACTIONS (3)
  - Inappropriate antidiuretic hormone secretion [Recovered/Resolved]
  - Hyponatraemia [Recovered/Resolved]
  - Hypochloraemia [Recovered/Resolved]
